FAERS Safety Report 10699033 (Version 2)
Quarter: 2015Q1

REPORT INFORMATION
  Report Type: Spontaneous
  Country: US (occurrence: US)
  Receive Date: 20150108
  Receipt Date: 20150303
  Transmission Date: 20150721
  Serious: No
  Sender: FDA-Public Use
  Company Number: US-TEVA-533210USA

PATIENT
  Sex: Female
  Weight: 113.05 kg

DRUGS (2)
  1. PARAGARD T 380A [Suspect]
     Active Substance: COPPER
     Indication: CONTRACEPTION
     Route: 015
     Dates: start: 20141223, end: 20150107
  2. IRON SUPPLEMENT [Concomitant]
     Active Substance: IRON
     Indication: ANAEMIA

REACTIONS (5)
  - Bacterial vaginosis [Not Recovered/Not Resolved]
  - Vaginal discharge [Not Recovered/Not Resolved]
  - Device expulsion [Recovered/Resolved]
  - Vaginal infection [Not Recovered/Not Resolved]
  - Vaginal odour [Not Recovered/Not Resolved]
